FAERS Safety Report 5362562-X (Version None)
Quarter: 2007Q2

REPORT INFORMATION
  Report Type: 
  Country: None (occurrence: None)
  Receive Date: 20070619
  Receipt Date: 20070614
  Transmission Date: 20071010
  Serious: Yes (Hospitalization)
  Sender: FDA-Public Use
  Company Number: CO-BOEHRINGER INGELHEIM PHARMACEUTICALS, INC.-2007-BP-09064CL

PATIENT
  Sex: Male
  Weight: 72 kg

DRUGS (1)
  1. SECOTEX CAPSULES [Suspect]
     Indication: BENIGN PROSTATIC HYPERPLASIA
     Route: 048
     Dates: start: 20070508

REACTIONS (5)
  - FATIGUE [None]
  - MUSCLE SPASMS [None]
  - PROCTALGIA [None]
  - PYREXIA [None]
  - URINE ODOUR ABNORMAL [None]
